FAERS Safety Report 22529988 (Version 1)
Quarter: 2023Q2

REPORT INFORMATION
  Report Type: Spontaneous
  Country: US (occurrence: None)
  Receive Date: 20230605
  Receipt Date: 20230605
  Transmission Date: 20230722
  Serious: Yes (Other)
  Sender: FDA-Public Use
  Company Number: None

PATIENT
  Sex: Male
  Weight: 79.38 kg

DRUGS (2)
  1. OXYBUTYNIN [Suspect]
     Active Substance: OXYBUTYNIN
     Indication: Hypertonic bladder
     Dosage: ONCE DAILY ORAL
     Route: 048
  2. TOLTERODINE [Suspect]
     Active Substance: TOLTERODINE
     Indication: Hypertonic bladder
     Dosage: ONCE DAILY ORAL
     Route: 048

REACTIONS (2)
  - Constipation [None]
  - Contraindicated product administered [None]
